FAERS Safety Report 9372902 (Version 1)
Quarter: 2013Q2

REPORT INFORMATION
  Report Type: Spontaneous
  Country: DK (occurrence: DK)
  Receive Date: 20130627
  Receipt Date: 20130627
  Transmission Date: 20140414
  Serious: Yes (Congenital Anomaly)
  Sender: FDA-Public Use
  Company Number: DK-BAYER-2013-078221

PATIENT
  Sex: Female

DRUGS (2)
  1. QLAIRA [Suspect]
     Indication: ADENOMYOSIS
     Dosage: 1 DF, QD
     Route: 064
     Dates: start: 2012, end: 20130402
  2. QLAIRA [Suspect]
     Indication: ADENOMYOSIS
     Dosage: 1 DF, QD
     Route: 064
     Dates: start: 2012, end: 20130402

REACTIONS (4)
  - Foetal exposure during pregnancy [Recovered/Resolved]
  - Fallot^s tetralogy [Not Recovered/Not Resolved]
  - Exomphalos [Not Recovered/Not Resolved]
  - Congenital hand malformation [Not Recovered/Not Resolved]
